FAERS Safety Report 5568220-0 (Version None)
Quarter: 2007Q4

REPORT INFORMATION
  Report Type: 
  Country: None (occurrence: None)
  Receive Date: 20071220
  Receipt Date: 20071217
  Transmission Date: 20080405
  Serious: Yes (Death, Hospitalization)
  Sender: FDA-Public Use
  Company Number: TR-BRISTOL-MYERS SQUIBB COMPANY-13994538

PATIENT
  Age: 53 Year
  Sex: Male

DRUGS (2)
  1. WARFARIN SODIUM [Suspect]
     Indication: ANTICOAGULANT THERAPY
  2. ENOXAPARIN SODIUM [Concomitant]

REACTIONS (8)
  - CARDIOGENIC SHOCK [None]
  - HYPERBILIRUBINAEMIA [None]
  - HYPOTENSION [None]
  - INTERNATIONAL NORMALISED RATIO INCREASED [None]
  - LEUKOCYTOCLASTIC VASCULITIS [None]
  - PULMONARY OEDEMA [None]
  - SKIN NECROSIS [None]
  - TRANSAMINASES INCREASED [None]
